FAERS Safety Report 19094376 (Version 5)
Quarter: 2021Q2

REPORT INFORMATION
  Report Type: Report from Study
  Country: US (occurrence: US)
  Receive Date: 20210405
  Receipt Date: 20210626
  Transmission Date: 20210717
  Serious: No
  Sender: FDA-Public Use
  Company Number: NVSC2021US074407

PATIENT
  Age: 76 Year
  Sex: Female

DRUGS (2)
  1. PIQRAY [Suspect]
     Active Substance: ALPELISIB
     Indication: BREAST CANCER
     Dosage: 300 MG, QD
     Route: 048
     Dates: start: 20210317
  2. PIQRAY [Suspect]
     Active Substance: ALPELISIB
     Dosage: UNK (2X/DAY)
     Route: 065
     Dates: start: 20210519

REACTIONS (9)
  - Malaise [Unknown]
  - Eye pruritus [Unknown]
  - Diarrhoea [Unknown]
  - Visual impairment [Unknown]
  - Product availability issue [Unknown]
  - Rash [Unknown]
  - Product dose omission issue [Unknown]
  - Lethargy [Unknown]
  - Fatigue [Unknown]

NARRATIVE: CASE EVENT DATE: 20210331
